FAERS Safety Report 19301383 (Version 2)
Quarter: 2021Q4

REPORT INFORMATION
  Report Type: Report from Study
  Country: BR (occurrence: BR)
  Receive Date: 20210525
  Receipt Date: 20211120
  Transmission Date: 20220303
  Serious: Yes (Other)
  Sender: FDA-Public Use
  Company Number: BR-NOVARTISPH-NVSC2021BR112639

PATIENT
  Age: 68 Year
  Sex: Female

DRUGS (1)
  1. COSENTYX [Suspect]
     Active Substance: SECUKINUMAB
     Indication: Product used for unknown indication
     Dosage: UNK (IN USE)
     Route: 065

REACTIONS (7)
  - Immunodeficiency [Recovered/Resolved]
  - Post vaccination syndrome [Recovered/Resolved]
  - Malaise [Recovered/Resolved]
  - Pain [Recovered/Resolved]
  - Feeling abnormal [Recovered/Resolved]
  - Urinary tract infection [Recovered/Resolved]
  - Blood urine present [Unknown]

NARRATIVE: CASE EVENT DATE: 20210423
